APPROVED DRUG PRODUCT: BETOPTIC S
Active Ingredient: BETAXOLOL HYDROCHLORIDE
Strength: EQ 0.25% BASE
Dosage Form/Route: SUSPENSION/DROPS;OPHTHALMIC
Application: N019845 | Product #001
Applicant: NOVARTIS PHARMACEUTICALS CORP
Approved: Dec 29, 1989 | RLD: Yes | RS: Yes | Type: RX